FAERS Safety Report 5005114-3 (Version None)
Quarter: 2006Q2

REPORT INFORMATION
  Report Type: 
  Country: None (occurrence: None)
  Receive Date: 20060512
  Receipt Date: 20060505
  Transmission Date: 20061013
  Serious: Yes (Hospitalization, Other)
  Sender: FDA-Public Use
  Company Number: 2006048360

PATIENT
  Age: 74 Year
  Sex: Female
  Weight: 90 kg

DRUGS (3)
  1. NEURONTIN [Suspect]
     Indication: NEUROPATHY PERIPHERAL
     Dosage: 900 MG (300 MG, 3 IN 1 D) ORAL
     Route: 048
     Dates: start: 20051021, end: 20051028
  2. TIOTROPIUM BROMIDE [Concomitant]
  3. PARADEX (DEXTROPROPOXYPHENE HYDROCHLORIDE, PARACETAMOL) [Concomitant]

REACTIONS (4)
  - ARTHRALGIA [None]
  - CONDITION AGGRAVATED [None]
  - DEEP VEIN THROMBOSIS [None]
  - JOINT SWELLING [None]
